FAERS Safety Report 7956431-6 (Version None)
Quarter: 2011Q4

REPORT INFORMATION
  Report Type: 
  Country: None (occurrence: None)
  Receive Date: 20111205
  Receipt Date: 20111125
  Transmission Date: 20120403
  Serious: Yes (Hospitalization)
  Sender: FDA-Public Use
  Company Number: FR-BRISTOL-MYERS SQUIBB COMPANY-16255804

PATIENT
  Age: 56 Year
  Sex: Male

DRUGS (9)
  1. LISINOPRIL [Suspect]
  2. ACETAMINOPHEN AND TRAMADOL HCL [Suspect]
  3. DIAMICRON [Concomitant]
  4. ATORVASTATIN CALCIUM [Suspect]
  5. OMEPRAZOLE [Concomitant]
  6. ONGLYZA [Suspect]
     Route: 048
  7. GLUCOPHAGE [Concomitant]
  8. ASPIRIN [Concomitant]
  9. CIALIS [Suspect]
     Dates: start: 20110701

REACTIONS (1)
  - PANCREATITIS ACUTE [None]
